FAERS Safety Report 18005231 (Version 3)
Quarter: 2020Q4

REPORT INFORMATION
  Report Type: Report from Study
  Country: IL (occurrence: IL)
  Receive Date: 20200709
  Receipt Date: 20201016
  Transmission Date: 20210113
  Serious: Yes (Hospitalization, Other)
  Sender: FDA-Public Use
  Company Number: IL-TAKEDA-2020TUS028757

PATIENT
  Age: 37 Year
  Sex: Female

DRUGS (1)
  1. VEDOLIZUMAB [Suspect]
     Active Substance: VEDOLIZUMAB
     Indication: COLITIS ULCERATIVE
     Dosage: 300 MILLIGRAM, Q4WEEKS
     Route: 042
     Dates: start: 20160502, end: 20200930

REACTIONS (7)
  - Pyrexia [Recovered/Resolved]
  - Haematochezia [Not Recovered/Not Resolved]
  - Intestinal obstruction [Not Recovered/Not Resolved]
  - Colitis ulcerative [Not Recovered/Not Resolved]
  - Drug ineffective [Unknown]
  - Frequent bowel movements [Not Recovered/Not Resolved]
  - Weight decreased [Unknown]

NARRATIVE: CASE EVENT DATE: 202003
